FAERS Safety Report 13058500 (Version 3)
Quarter: 2017Q1

REPORT INFORMATION
  Report Type: Spontaneous
  Country: GB (occurrence: GB)
  Receive Date: 20161223
  Receipt Date: 20170207
  Transmission Date: 20170428
  Serious: Yes (Other)
  Sender: FDA-Public Use
  Company Number: GB-BEH-2016075879

PATIENT
  Sex: Male
  Weight: 66.67 kg

DRUGS (1)
  1. HIZENTRA [Suspect]
     Active Substance: HUMAN IMMUNOGLOBULIN G
     Indication: PRODUCT USED FOR UNKNOWN INDICATION
     Dosage: 20 G, QW
     Route: 058

REACTIONS (4)
  - Lymphocyte count decreased [Unknown]
  - Lymphoma [Unknown]
  - Infusion site discomfort [Unknown]
  - Infusion site pain [Unknown]
